FAERS Safety Report 20692831 (Version 1)
Quarter: 2022Q2

REPORT INFORMATION
  Report Type: Spontaneous
  Country: US (occurrence: None)
  Receive Date: 20220409
  Receipt Date: 20220409
  Transmission Date: 20220720
  Serious: Yes (Other)
  Sender: FDA-Public Use
  Company Number: US-ROCHE-3068500

PATIENT
  Sex: Female

DRUGS (17)
  1. ERIVEDGE [Suspect]
     Active Substance: VISMODEGIB
     Indication: Rheumatoid arthritis
     Route: 065
  2. PREDNISONE [Concomitant]
     Active Substance: PREDNISONE
  3. TRAMADOL HCL [Concomitant]
     Active Substance: TRAMADOL HYDROCHLORIDE
  4. OXYCODONE HYDROCHLORIDE [Concomitant]
     Active Substance: OXYCODONE HYDROCHLORIDE
  5. BENZONATATE [Concomitant]
     Active Substance: BENZONATATE
  6. CHERATUSSIN DAC [Concomitant]
     Active Substance: CODEINE PHOSPHATE\GUAIFENESIN\PSEUDOEPHEDRINE HYDROCHLORIDE
  7. LEVOTHYROXINE [Concomitant]
     Active Substance: LEVOTHYROXINE
  8. PENTOXIFYLLINE [Concomitant]
     Active Substance: PENTOXIFYLLINE
     Dosage: TAB 400 MG ER
  9. GABAPENTIN [Concomitant]
     Active Substance: GABAPENTIN
  10. CLINDAMYCIN [Concomitant]
     Active Substance: CLINDAMYCIN
  11. DULOXETINE [Concomitant]
     Active Substance: DULOXETINE
  12. FOLIC ACID [Concomitant]
     Active Substance: FOLIC ACID
  13. LYRICA [Concomitant]
     Active Substance: PREGABALIN
  14. METHOTREXATE [Concomitant]
     Active Substance: METHOTREXATE
  15. SUPREP BOWEL PREP [Concomitant]
     Active Substance: MAGNESIUM SULFATE\POTASSIUM SULFATE\SODIUM SULFATE
  16. TRAZODONE [Concomitant]
     Active Substance: TRAZODONE HYDROCHLORIDE
  17. CYMBALTA [Concomitant]
     Active Substance: DULOXETINE HYDROCHLORIDE

REACTIONS (1)
  - Skin cancer [Not Recovered/Not Resolved]
